FAERS Safety Report 8057197-4 (Version None)
Quarter: 2012Q1

REPORT INFORMATION
  Report Type: 
  Country: None (occurrence: None)
  Receive Date: 20120119
  Receipt Date: 20120112
  Transmission Date: 20120608
  Serious: Yes (Other)
  Sender: FDA-Public Use
  Company Number: PHEH2009US17721

PATIENT
  Sex: Female

DRUGS (2)
  1. AMLODIPINE [Concomitant]
     Dosage: 1 DF, UNK
  2. DIOVAN HCT [Suspect]
     Dosage: 160 MG, QD
     Dates: start: 20090901

REACTIONS (3)
  - FALL [None]
  - SLEEP DISORDER [None]
  - POLLAKIURIA [None]
